FAERS Safety Report 9626703 (Version 1)
Quarter: 2013Q4

REPORT INFORMATION
  Report Type: Spontaneous
  Country: BR (occurrence: BR)
  Receive Date: 20131016
  Receipt Date: 20131016
  Transmission Date: 20140711
  Serious: No
  Sender: FDA-Public Use
  Company Number: BR-ASTRAZENECA-2013SE40181

PATIENT
  Age: 750 Month
  Sex: Female
  Weight: 62 kg

DRUGS (1)
  1. ATACAND HCT [Suspect]
     Indication: HYPERTENSION
     Dosage: 8+12.5 MG, DAILY
     Route: 048
     Dates: start: 2008

REACTIONS (1)
  - Micturition frequency decreased [Not Recovered/Not Resolved]
